FAERS Safety Report 14428204 (Version 1)
Quarter: 2018Q1

REPORT INFORMATION
  Report Type: Report from Study
  Country: US (occurrence: US)
  Receive Date: 20180123
  Receipt Date: 20180123
  Transmission Date: 20180509
  Serious: No
  Sender: FDA-Public Use
  Company Number: US-AMGEN-USASL2017161613

PATIENT
  Age: 67 Year
  Sex: Male

DRUGS (2)
  1. CLARITIN [Concomitant]
     Active Substance: LORATADINE
     Dosage: UNK
  2. REPATHA [Suspect]
     Active Substance: EVOLOCUMAB
     Indication: HYPERLIPIDAEMIA
     Dosage: 140 MG, Q2WK
     Route: 058

REACTIONS (3)
  - Pain [Unknown]
  - Paranasal sinus hypersecretion [Not Recovered/Not Resolved]
  - Fatigue [Unknown]
